FAERS Safety Report 8241567-5 (Version None)
Quarter: 2012Q1

REPORT INFORMATION
  Report Type: 
  Country: None (occurrence: None)
  Receive Date: 20120328
  Receipt Date: 20120313
  Transmission Date: 20120608
  Serious: Yes (Other)
  Sender: FDA-Public Use
  Company Number: IL-ROCHE-1008973

PATIENT
  Age: 67 Year
  Sex: Male
  Weight: 89.6 kg

DRUGS (4)
  1. VEMURAFENIB [Suspect]
     Dates: start: 20110727, end: 20110729
  2. VEMURAFENIB [Suspect]
     Dates: start: 20111031
  3. VEMURAFENIB [Suspect]
     Indication: METASTATIC MALIGNANT MELANOMA
     Route: 048
     Dates: start: 20110718
  4. VEMURAFENIB [Suspect]
     Dates: start: 20110723, end: 20110724

REACTIONS (1)
  - ANAEMIA [None]
